FAERS Safety Report 7968139-1 (Version None)
Quarter: 2011Q4

REPORT INFORMATION
  Report Type: 
  Country: None (occurrence: None)
  Receive Date: 20111209
  Receipt Date: 20111129
  Transmission Date: 20120403
  Serious: Yes (Other)
  Sender: FDA-Public Use
  Company Number: US-BRISTOL-MYERS SQUIBB COMPANY-15422694

PATIENT
  Age: 57 Year
  Sex: Female

DRUGS (2)
  1. SPRYCEL [Suspect]
     Indication: CHRONIC MYELOID LEUKAEMIA
     Dosage: LOWER TO 70MG
     Route: 048
     Dates: start: 20100501
  2. MEGACE [Suspect]
     Indication: VOMITING

REACTIONS (5)
  - BLISTER [None]
  - WEIGHT INCREASED [None]
  - CONTUSION [None]
  - SWELLING [None]
  - PLEURAL EFFUSION [None]
